FAERS Safety Report 5032266-1 (Version None)
Quarter: 2006Q2

REPORT INFORMATION
  Report Type: 
  Country: None (occurrence: None)
  Receive Date: 20060619
  Receipt Date: 20060607
  Transmission Date: 20061013
  Serious: Yes (Other)
  Sender: FDA-Public Use
  Company Number: ZICO001267

PATIENT
  Age: 35 Year
  Sex: Female
  Weight: 57.6 kg

DRUGS (2)
  1. PRIALT [Suspect]
     Indication: PAIN
     Dosage: UG, ONCE/HOUR, INTRATHECAL
     Route: 037
     Dates: start: 20050526
  2. FENTANYL [Concomitant]

REACTIONS (3)
  - AMENORRHOEA [None]
  - STRESS [None]
  - THYROID DISORDER [None]
